FAERS Safety Report 6157588-2 (Version None)
Quarter: 2009Q2

REPORT INFORMATION
  Report Type: 
  Country: None (occurrence: None)
  Receive Date: 20090416
  Receipt Date: 20090406
  Transmission Date: 20091009
  Serious: Yes (Hospitalization)
  Sender: FDA-Public Use
  Company Number: US-WATSON-2009-02323

PATIENT
  Age: 58 Year
  Sex: Male

DRUGS (1)
  1. FENTANYL CITRATE [Suspect]
     Indication: ANALGESIA
     Dosage: 300 MCG, PERI- AND POST-OP
     Route: 042
     Dates: start: 20090101

REACTIONS (2)
  - BRADYKINESIA [None]
  - MUSCLE RIGIDITY [None]
